FAERS Safety Report 21662193 (Version 1)
Quarter: 2022Q4

REPORT INFORMATION
  Report Type: Report from Study
  Country: US (occurrence: US)
  Receive Date: 20221130
  Receipt Date: 20221130
  Transmission Date: 20230113
  Serious: Yes (Hospitalization, Other)
  Sender: FDA-Public Use
  Company Number: US-MYLANLABS-2022M1133584

PATIENT

DRUGS (2)
  1. GEMCITABINE [Suspect]
     Active Substance: GEMCITABINE
     Indication: Neoplasm malignant
     Dosage: 1000 MILLIGRAM/SQ. METER, CYCLE; ON DAYS 1, 8, 15 OF A 28 DAY TREATMENT CYCLE...
     Route: 042
  2. ALISERTIB [Suspect]
     Active Substance: ALISERTIB
     Indication: Neoplasm malignant
     Dosage: 50 MILLIGRAM, CYCLE; 50 MG TWICE A DAY ON DAYS 1-3, 8-10, AND 15-17 OF A 28 DAY....
     Route: 048

REACTIONS (6)
  - Febrile neutropenia [Unknown]
  - Hyponatraemia [Unknown]
  - Dehydration [Unknown]
  - Mucosal inflammation [Unknown]
  - Leukopenia [Unknown]
  - Lymphopenia [Unknown]
